FAERS Safety Report 21095542 (Version 10)
Quarter: 2024Q2

REPORT INFORMATION
  Report Type: Spontaneous
  Country: US (occurrence: US)
  Receive Date: 20220718
  Receipt Date: 20240426
  Transmission Date: 20240716
  Serious: Yes (Other)
  Sender: FDA-Public Use
  Company Number: US-PFIZER INC-PV202200023521

PATIENT
  Age: 68 Year
  Sex: Female
  Weight: 76.2 kg

DRUGS (2)
  1. IBRANCE [Suspect]
     Active Substance: PALBOCICLIB
     Indication: Breast cancer metastatic
     Dosage: TAKE 1 TABLET 125MG BY MOUTH ONCE DAILY FOR 21 DAYS ON THEN 7 DAYS OFF, TAKE WITH OR WITHOUT FOOD
     Route: 048
  2. IBRANCE [Suspect]
     Active Substance: PALBOCICLIB
     Dosage: 125 MG
     Dates: start: 20230218

REACTIONS (8)
  - Pneumonia [Unknown]
  - Hormone level abnormal [Unknown]
  - Allergic cough [Unknown]
  - Anaemia [Unknown]
  - Renal disorder [Unknown]
  - Bladder disorder [Unknown]
  - Illness [Unknown]
  - Full blood count abnormal [Unknown]
